FAERS Safety Report 7627259-1 (Version None)
Quarter: 2011Q3

REPORT INFORMATION
  Report Type: 
  Country: None (occurrence: None)
  Receive Date: 20110721
  Receipt Date: 20110711
  Transmission Date: 20111222
  Serious: Yes (Other)
  Sender: FDA-Public Use
  Company Number: PHHY2011ZA61712

PATIENT
  Sex: Male

DRUGS (1)
  1. ZOLEDRONOC ACID [Suspect]
     Dosage: 5 MG/ 100 ML
     Route: 042
     Dates: start: 20110623

REACTIONS (8)
  - LOWER RESPIRATORY TRACT INFECTION [None]
  - ABNORMAL DREAMS [None]
  - FEELING ABNORMAL [None]
  - DIZZINESS [None]
  - DEPRESSED MOOD [None]
  - INSOMNIA [None]
  - HALLUCINATION [None]
  - MUSCLE SPASMS [None]
